FAERS Safety Report 19232270 (Version 6)
Quarter: 2022Q2

REPORT INFORMATION
  Report Type: Spontaneous
  Country: US (occurrence: US)
  Receive Date: 20210507
  Receipt Date: 20220509
  Transmission Date: 20220720
  Serious: Yes (Hospitalization)
  Sender: FDA-Public Use
  Company Number: US-PFIZER INC-2021247922

PATIENT
  Age: 75 Year
  Sex: Female
  Weight: 81.65 kg

DRUGS (4)
  1. IBRANCE [Suspect]
     Active Substance: PALBOCICLIB
     Indication: Breast cancer stage IV
     Dosage: 14 DAYS FOLLOWED BY 14 DAYS OFF
     Route: 048
  2. IBRANCE [Suspect]
     Active Substance: PALBOCICLIB
     Dosage: 125 MG
  3. IBRANCE [Suspect]
     Active Substance: PALBOCICLIB
     Dosage: ON TWO WEEKS, OFF TWO WEEKS
  4. IBRANCE [Suspect]
     Active Substance: PALBOCICLIB
     Dosage: ON TWO WEEKS, OFF TWO WEEKS
     Dates: end: 20220109

REACTIONS (1)
  - Malaise [Unknown]
